FAERS Safety Report 22532660 (Version 1)
Quarter: 2023Q2

REPORT INFORMATION
  Report Type: Spontaneous
  Country: DK (occurrence: DK)
  Receive Date: 20230607
  Receipt Date: 20230607
  Transmission Date: 20230722
  Serious: Yes (Disabling)
  Sender: FDA-Public Use
  Company Number: DK-DKMA-ADR 24486482

PATIENT
  Age: 80 Year
  Sex: Male

DRUGS (3)
  1. MYDRIACYL [Suspect]
     Active Substance: TROPICAMIDE
     Indication: Mydriasis
     Dosage: STYRKE OG DOSIS: IKKE OPLYST
     Route: 050
     Dates: start: 20181214
  2. PHENYLEPHRINE [Suspect]
     Active Substance: PHENYLEPHRINE HYDROCHLORIDE
     Indication: Mydriasis
     Dosage: STYRKE OG DOSIS: IKKE OPLYST
     Route: 050
     Dates: start: 20181214
  3. CYCLOGYL [Suspect]
     Active Substance: CYCLOPENTOLATE HYDROCHLORIDE
     Indication: Mydriasis
     Dosage: STYRKE: 1 %. DOSIS: IKKE OPLYST; OTHER
     Route: 050
     Dates: start: 20181214

REACTIONS (6)
  - Balance disorder [Not Recovered/Not Resolved]
  - Glare [Not Recovered/Not Resolved]
  - Pupil fixed [Not Recovered/Not Resolved]
  - Coordination abnormal [Not Recovered/Not Resolved]
  - Photophobia [Not Recovered/Not Resolved]
  - Headache [Not Recovered/Not Resolved]

NARRATIVE: CASE EVENT DATE: 20181217
